FAERS Safety Report 4481049-X (Version None)
Quarter: 2004Q4

REPORT INFORMATION
  Report Type: 
  Country: None (occurrence: None)
  Receive Date: 20041021
  Receipt Date: 20041015
  Transmission Date: 20050328
  Serious: Yes (Other)
  Sender: FDA-Public Use
  Company Number: US-JNJFOC-20041005281

PATIENT
  Sex: Male

DRUGS (2)
  1. RISPERDAL [Suspect]
     Indication: DEVELOPMENTAL DELAY
     Route: 049
  2. CONCERTA [Concomitant]
     Route: 049

REACTIONS (1)
  - LEUKOPENIA [None]
